FAERS Safety Report 6408855-6 (Version None)
Quarter: 2009Q4

REPORT INFORMATION
  Report Type: 
  Country: None (occurrence: None)
  Receive Date: 20091009
  Receipt Date: 20090917
  Transmission Date: 20100525
  Serious: Yes (Other)
  Sender: FDA-Public Use
  Company Number: CHPA2009CA18684

PATIENT
  Age: 67 Year
  Sex: Female
  Weight: 63.5 kg

DRUGS (2)
  1. HABITROL [Suspect]
     Indication: SMOKING CESSATION THERAPY
     Dosage: 21 MG, QD, TRANSDERMAL
     Route: 062
     Dates: start: 20090818
  2. HORMONES (HORMONES) [Concomitant]

REACTIONS (4)
  - DYSKINESIA [None]
  - LUNG NEOPLASM MALIGNANT [None]
  - NIGHT SWEATS [None]
  - PRODUCT ADHESION ISSUE [None]
